FAERS Safety Report 18674443 (Version 1)
Quarter: 2020Q4

REPORT INFORMATION
  Report Type: Spontaneous
  Country: JP (occurrence: JP)
  Receive Date: 20201229
  Receipt Date: 20201229
  Transmission Date: 20210114
  Serious: Yes (Other)
  Sender: FDA-Public Use
  Company Number: JP-009507513-2012JPN011881

PATIENT
  Age: 56 Year
  Sex: Male

DRUGS (4)
  1. BILANOA [Suspect]
     Active Substance: BILASTINE
     Indication: UPPER RESPIRATORY TRACT INFLAMMATION
     Dosage: UNK
     Route: 048
     Dates: start: 20201003, end: 20201008
  2. TRANSAMIN [Concomitant]
     Active Substance: TRANEXAMIC ACID
     Indication: UPPER RESPIRATORY TRACT INFLAMMATION
     Dosage: UNK
     Route: 065
     Dates: start: 20201003, end: 20201008
  3. MONTELUKAST SODIUM. [Suspect]
     Active Substance: MONTELUKAST SODIUM
     Indication: UPPER RESPIRATORY TRACT INFLAMMATION
     Dosage: 10 MILLIGRAM
     Route: 048
     Dates: start: 20201003, end: 20201008
  4. MEIACT MS [Concomitant]
     Active Substance: CEFDITOREN PIVOXIL
     Indication: UPPER RESPIRATORY TRACT INFLAMMATION
     Dosage: UNK
     Route: 065
     Dates: start: 20201003, end: 20201008

REACTIONS (1)
  - Alopecia areata [Not Recovered/Not Resolved]

NARRATIVE: CASE EVENT DATE: 202010
